FAERS Safety Report 5341313-9 (Version None)
Quarter: 2007Q2

REPORT INFORMATION
  Report Type: 
  Country: None (occurrence: None)
  Receive Date: 20070404
  Receipt Date: 20070119
  Transmission Date: 20071010
  Serious: Yes (Other)
  Sender: FDA-Public Use
  Company Number: 2006149353

PATIENT
  Sex: Female

DRUGS (2)
  1. GEODON [Suspect]
     Indication: ANXIETY DISORDER
     Dosage: 120 MG (60 MG,2 IN 1 D),ORAL
     Route: 048
     Dates: start: 20061101
  2. GEODON [Suspect]
     Indication: BIPOLAR II DISORDER
     Dosage: 120 MG (60 MG,2 IN 1 D),ORAL
     Route: 048
     Dates: start: 20061101

REACTIONS (2)
  - ANXIETY DISORDER [None]
  - TARDIVE DYSKINESIA [None]
